FAERS Safety Report 6804173-2 (Version None)
Quarter: 2010Q2

REPORT INFORMATION
  Report Type: 
  Country: None (occurrence: None)
  Receive Date: 20100628
  Receipt Date: 20070125
  Transmission Date: 20101027
  Serious: No
  Sender: FDA-Public Use
  Company Number: US-PFIZER INC-2007007391

PATIENT
  Sex: Male

DRUGS (2)
  1. XALATAN [Suspect]
     Route: 047
     Dates: start: 20030101
  2. BENAZEPRIL HYDROCHLORIDE [Concomitant]

REACTIONS (1)
  - EYE MOVEMENT DISORDER [None]
